FAERS Safety Report 22925103 (Version 6)
Quarter: 2023Q4

REPORT INFORMATION
  Report Type: Report from Study
  Country: CN (occurrence: None)
  Receive Date: 20230908
  Receipt Date: 20231004
  Transmission Date: 20240110
  Serious: Yes (Hospitalization)
  Sender: FDA-Public Use
  Company Number: CN-Eisai Inc (Eisai China)-EC-2023-148199

PATIENT
  Age: 64 Year
  Sex: Female
  Weight: 62 kg

DRUGS (8)
  1. LENVATINIB [Suspect]
     Active Substance: LENVATINIB
     Indication: Clear cell renal cell carcinoma
     Dosage: STARTING DOSE AT 20MG (FLUCTUATED DOSE)
     Route: 048
     Dates: start: 20230630, end: 20230812
  2. PEMBROLIZUMAB [Suspect]
     Active Substance: PEMBROLIZUMAB
     Indication: Clear cell renal cell carcinoma
     Route: 041
     Dates: start: 20230630, end: 20230811
  3. BELZUTIFAN [Suspect]
     Active Substance: BELZUTIFAN
     Indication: Clear cell renal cell carcinoma
     Dosage: STARTING DOSE AT 120MG (FLUCTUATED DOSE)
     Route: 048
     Dates: start: 20230630, end: 20230812
  4. PHOSPHOLIPID [Concomitant]
     Active Substance: PHOSPHOLIPID
     Dates: start: 20230714
  5. BICYCLOL [Concomitant]
     Active Substance: BICYCLOL
     Dates: start: 20230717
  6. HERBALS\DIAMMONIUM GLYCYRRHIZINATE [Concomitant]
     Active Substance: HERBALS\DIAMMONIUM GLYCYRRHIZINATE
     Dates: start: 20230714
  7. CEFOPERAZONE SODIUM\SULBACTAM SODIUM [Concomitant]
     Active Substance: CEFOPERAZONE SODIUM\SULBACTAM SODIUM
     Dates: start: 20230813, end: 20230818
  8. CEFIXIME [Concomitant]
     Active Substance: CEFIXIME
     Dates: start: 20230813

REACTIONS (1)
  - Infection [Recovered/Resolved]

NARRATIVE: CASE EVENT DATE: 20230901
